FAERS Safety Report 17337444 (Version 1)
Quarter: 2020Q1

REPORT INFORMATION
  Report Type: Spontaneous
  Country: ES (occurrence: ES)
  Receive Date: 20200129
  Receipt Date: 20200129
  Transmission Date: 20200409
  Serious: Yes (Other)
  Sender: FDA-Public Use
  Company Number: ES-ACCORD-170848

PATIENT
  Age: 62 Year
  Sex: Male
  Weight: 79 kg

DRUGS (8)
  1. PROPOFOL. [Concomitant]
     Active Substance: PROPOFOL
     Indication: ANAESTHESIA
     Route: 042
     Dates: start: 20190624, end: 20190624
  2. FENTANEST [Concomitant]
     Active Substance: FENTANYL CITRATE
     Indication: ANAESTHESIA
     Dosage: STRENGTH: 0.05 MG / ML, 5 AMPOULES OF 3 ML
     Route: 042
     Dates: start: 20190624, end: 20190624
  3. ONDANSETRON [Suspect]
     Active Substance: ONDANSETRON
     Indication: NAUSEA
     Route: 042
     Dates: start: 20190624, end: 20190624
  4. SUGAMMADEX [Suspect]
     Active Substance: SUGAMMADEX
     Indication: NEUROMUSCULAR BLOCKADE REVERSAL
     Route: 040
     Dates: start: 20190624, end: 20190624
  5. MANNITOL. [Concomitant]
     Active Substance: MANNITOL
     Indication: POLYURIA
     Route: 042
     Dates: start: 20190624, end: 20190624
  6. METAMIZOLE SODIUM [Concomitant]
     Active Substance: METAMIZOLE SODIUM
     Indication: PAIN
     Route: 042
     Dates: start: 20190624, end: 20190624
  7. ROCURONIUM [Concomitant]
     Active Substance: ROCURONIUM BROMIDE
     Indication: NEUROMUSCULAR BLOCKADE
     Route: 042
     Dates: start: 20190624, end: 20190624
  8. METHYLPREDNISOLONE. [Concomitant]
     Active Substance: METHYLPREDNISOLONE
     Indication: PROPHYLAXIS AGAINST TRANSPLANT REJECTION
     Route: 042
     Dates: start: 20190624, end: 20190624

REACTIONS (1)
  - Anaphylactic shock [Recovered/Resolved]

NARRATIVE: CASE EVENT DATE: 20190624
